FAERS Safety Report 16398683 (Version 4)
Quarter: 2021Q2

REPORT INFORMATION
  Report Type: Spontaneous
  Country: US (occurrence: US)
  Receive Date: 20190606
  Receipt Date: 20210409
  Transmission Date: 20210716
  Serious: No
  Sender: FDA-Public Use
  Company Number: US-PFIZER INC-2019230254

PATIENT
  Age: 53 Year
  Sex: Female
  Weight: 102 kg

DRUGS (4)
  1. RAPAMUNE [Suspect]
     Active Substance: SIROLIMUS
     Dosage: UNK, DAILY
     Route: 048
     Dates: start: 20160202
  2. RAPAMUNE [Suspect]
     Active Substance: SIROLIMUS
     Dosage: 1 MG, DAILY (ONE TABLET DAILY)
     Route: 048
  3. RAPAMUNE [Suspect]
     Active Substance: SIROLIMUS
     Dosage: 0.5 MG, DAILY (ONE TABLET DAILY)
     Route: 048
  4. RAPAMUNE [Suspect]
     Active Substance: SIROLIMUS
     Indication: LUNG TRANSPLANT
     Dosage: 1 MG, DAILY
     Route: 048
     Dates: start: 20190520

REACTIONS (2)
  - Drug level below therapeutic [Unknown]
  - Off label use [Unknown]

NARRATIVE: CASE EVENT DATE: 201905
